FAERS Safety Report 5705962-8 (Version None)
Quarter: 2008Q2

REPORT INFORMATION
  Report Type: 
  Country: None (occurrence: None)
  Receive Date: 20080411
  Receipt Date: 20080401
  Transmission Date: 20081010
  Serious: Yes (Hospitalization)
  Sender: FDA-Public Use
  Company Number: TPA2008A00433

PATIENT
  Age: 77 Year
  Sex: Male
  Weight: 108.8633 kg

DRUGS (7)
  1. ACTOS [Suspect]
     Indication: TYPE 2 DIABETES MELLITUS
     Dosage: PER ORAL; 45 MG, 1 IN 1 D, PER ORAL
     Route: 048
  2. OMEGA 3 FISH OIL CAPSULES (FISH OIL) [Suspect]
     Indication: HIGH DENSITY LIPOPROTEIN INCREASED
     Dosage: 1000 MG, 1 IN 1 D, PER ORAL
     Route: 048
     Dates: start: 20080318
  3. COUMADIN [Suspect]
     Indication: ANTICOAGULANT THERAPY
     Dosage: 6 MG, 1 IN 1 D, PER ORAL; 5 MG, 1 IN 1 D, PER ORAL
     Route: 048
     Dates: end: 20080325
  4. COUMADIN [Suspect]
     Indication: ANTICOAGULANT THERAPY
     Dosage: 6 MG, 1 IN 1 D, PER ORAL; 5 MG, 1 IN 1 D, PER ORAL
     Route: 048
     Dates: start: 20080325
  5. COREG [Concomitant]
  6. FLOMAX [Concomitant]
  7. MOTRIN [Concomitant]

REACTIONS (5)
  - APPENDICITIS [None]
  - DRUG EFFECT DECREASED [None]
  - DRUG EFFECT INCREASED [None]
  - DRUG INTERACTION [None]
  - HEART RATE IRREGULAR [None]
